FAERS Safety Report 25705654 (Version 1)
Quarter: 2025Q3

REPORT INFORMATION
  Report Type: Spontaneous
  Country: IN (occurrence: IN)
  Receive Date: 20250820
  Receipt Date: 20250820
  Transmission Date: 20251021
  Serious: Yes (Other)
  Sender: MYLAN
  Company Number: IN-MYLANLABS-2025M1069486

PATIENT
  Age: 64 Year
  Sex: Male

DRUGS (12)
  1. OXALIPLATIN [Suspect]
     Active Substance: OXALIPLATIN
     Indication: Colon cancer
     Dosage: INFUSION, 12 CYCLES, Q2W, PARENTERAL
     Dates: start: 201801, end: 201806
  2. OXALIPLATIN [Suspect]
     Active Substance: OXALIPLATIN
     Dosage: INFUSION, 12 CYCLES, Q2W, PARENTERAL
     Route: 065
     Dates: start: 201801, end: 201806
  3. OXALIPLATIN [Suspect]
     Active Substance: OXALIPLATIN
     Dosage: INFUSION, 12 CYCLES, Q2W, PARENTERAL
     Route: 065
     Dates: start: 201801, end: 201806
  4. OXALIPLATIN [Suspect]
     Active Substance: OXALIPLATIN
     Dosage: INFUSION, 12 CYCLES, Q2W, PARENTERAL
     Dates: start: 201801, end: 201806
  5. FLUOROURACIL [Suspect]
     Active Substance: FLUOROURACIL
     Indication: Colon cancer
     Dosage: INFUSION, 12 CYCLES, Q2W, PARENTERAL
     Dates: start: 201801, end: 201806
  6. FLUOROURACIL [Suspect]
     Active Substance: FLUOROURACIL
     Dosage: INFUSION, 12 CYCLES, Q2W, PARENTERAL
     Route: 065
     Dates: start: 201801, end: 201806
  7. FLUOROURACIL [Suspect]
     Active Substance: FLUOROURACIL
     Dosage: INFUSION, 12 CYCLES, Q2W, PARENTERAL
     Route: 065
     Dates: start: 201801, end: 201806
  8. FLUOROURACIL [Suspect]
     Active Substance: FLUOROURACIL
     Dosage: INFUSION, 12 CYCLES, Q2W, PARENTERAL
     Dates: start: 201801, end: 201806
  9. LEUCOVORIN [Suspect]
     Active Substance: LEUCOVORIN\LEUCOVORIN CALCIUM
     Indication: Colon cancer
     Dosage: INFUSION,12 CYCLES, Q2W
     Dates: start: 201801, end: 201806
  10. LEUCOVORIN [Suspect]
     Active Substance: LEUCOVORIN\LEUCOVORIN CALCIUM
     Dosage: INFUSION,12 CYCLES, Q2W
     Route: 065
     Dates: start: 201801, end: 201806
  11. LEUCOVORIN [Suspect]
     Active Substance: LEUCOVORIN\LEUCOVORIN CALCIUM
     Dosage: INFUSION,12 CYCLES, Q2W
     Route: 065
     Dates: start: 201801, end: 201806
  12. LEUCOVORIN [Suspect]
     Active Substance: LEUCOVORIN\LEUCOVORIN CALCIUM
     Dosage: INFUSION,12 CYCLES, Q2W
     Dates: start: 201801, end: 201806

REACTIONS (9)
  - Rectal haemorrhage [Recovered/Resolved]
  - Neuropathy peripheral [Recovered/Resolved]
  - Full blood count decreased [Recovered/Resolved]
  - Haemorrhoids [Unknown]
  - Anal fissure [Unknown]
  - Stomatitis [Recovered/Resolved]
  - Constipation [Recovered/Resolved]
  - Faeces hard [Unknown]
  - Dyschezia [Unknown]
